FAERS Safety Report 4268302-X (Version None)
Quarter: 2004Q1

REPORT INFORMATION
  Report Type: 
  Country: None (occurrence: None)
  Receive Date: 20040108
  Receipt Date: 20031020
  Transmission Date: 20041129
  Serious: Yes (Death, Life-Threatening)
  Sender: FDA-Public Use
  Company Number: 200311571

PATIENT
  Age: 36 Year
  Sex: Female
  Weight: 68 kg

DRUGS (2)
  1. BOTOX [Suspect]
     Indication: BACK PAIN
     Dosage: 500 UNITS PRN IM
     Route: 030
     Dates: start: 20030130
  2. INSULIN [Concomitant]

REACTIONS (3)
  - ARRHYTHMIA [None]
  - AUTONOMIC NEUROPATHY [None]
  - RENAL FAILURE CHRONIC [None]
